FAERS Safety Report 8604340-1 (Version None)
Quarter: 2012Q3

REPORT INFORMATION
  Report Type: 
  Country: None (occurrence: None)
  Receive Date: 20120807
  Receipt Date: 20120723
  Transmission Date: 20120928
  Serious: Yes (Hospitalization, Other)
  Sender: FDA-Public Use
  Company Number: 20120478

PATIENT
  Age: 28 Year
  Sex: Female

DRUGS (1)
  1. VENOFER [Suspect]
     Indication: ANAEMIA
     Dosage: 3 VIALS, SINGLE DOSE, INTRAVENOUS
     Route: 042
     Dates: start: 20120611, end: 20120611

REACTIONS (8)
  - HEADACHE [None]
  - MATERNAL EXPOSURE DURING PREGNANCY [None]
  - PRESYNCOPE [None]
  - LOSS OF CONSCIOUSNESS [None]
  - MALAISE [None]
  - DYSGEUSIA [None]
  - INFUSION SITE OEDEMA [None]
  - PARAESTHESIA [None]
